FAERS Safety Report 7638430-7 (Version None)
Quarter: 2011Q3

REPORT INFORMATION
  Report Type: 
  Country: None (occurrence: None)
  Receive Date: 20110711
  Receipt Date: 20110408
  Transmission Date: 20111222
  Serious: Yes (Other)
  Sender: FDA-Public Use
  Company Number: IPC201104-000584

PATIENT
  Sex: Female

DRUGS (2)
  1. REGLAN [Suspect]
  2. METOCLOPRAMIDE HYDROCHLORIDE [Suspect]
     Dosage: VARIOUS OCASSIONS THROUGHOUT HER MEDICAL HISTORY

REACTIONS (1)
  - DYSTONIA [None]
